FAERS Safety Report 5920539-7 (Version None)
Quarter: 2008Q4

REPORT INFORMATION
  Report Type: 
  Country: None (occurrence: None)
  Receive Date: 20081015
  Receipt Date: 20081015
  Transmission Date: 20090506
  Serious: No
  Sender: FDA-Public Use
  Company Number: None

PATIENT
  Age: 52 Year
  Sex: Female
  Weight: 90.7194 kg

DRUGS (1)
  1. VALPROIC ACID [Suspect]
     Dosage: 2000MG DAILY PO
     Route: 048

REACTIONS (1)
  - AMMONIA INCREASED [None]
